FAERS Safety Report 16893425 (Version 1)
Quarter: 2019Q4

REPORT INFORMATION
  Report Type: Spontaneous
  Country: CA (occurrence: CA)
  Receive Date: 20191008
  Receipt Date: 20191008
  Transmission Date: 20200122
  Serious: Yes (Hospitalization, Other)
  Sender: FDA-Public Use
  Company Number: CA-GLAXOSMITHKLINE-CA2019GSK145126

PATIENT
  Age: 22 Year
  Sex: Male

DRUGS (6)
  1. FEBUXOSTAT. [Interacting]
     Active Substance: FEBUXOSTAT
     Indication: GOUT
     Dosage: UNK
     Route: 065
  2. BUPROPION. [Suspect]
     Active Substance: BUPROPION
     Indication: GOUT
     Dosage: UNK
     Route: 065
     Dates: start: 2010, end: 2010
  3. FEBUXOSTAT. [Interacting]
     Active Substance: FEBUXOSTAT
     Dosage: UNK (4 YEARS LATER)
  4. ALLOPURINOL. [Interacting]
     Active Substance: ALLOPURINOL
     Indication: GOUT
     Dosage: UNK
     Route: 065
     Dates: start: 2007, end: 2010
  5. PREDNISONE. [Interacting]
     Active Substance: PREDNISONE
     Indication: GOUT
     Dosage: UNK
     Route: 065
  6. INDOMETHACIN. [Interacting]
     Active Substance: INDOMETHACIN
     Indication: GOUT
     Dosage: UNK
     Route: 065

REACTIONS (10)
  - Chills [Unknown]
  - Drug interaction [Unknown]
  - Dermatitis exfoliative generalised [Unknown]
  - Rash erythematous [Recovered/Resolved]
  - Stevens-Johnson syndrome [Unknown]
  - Rash pruritic [Recovered/Resolved]
  - Pyrexia [Unknown]
  - Rash maculo-papular [Recovered/Resolved]
  - Hyperhidrosis [Unknown]
  - Swelling face [Unknown]

NARRATIVE: CASE EVENT DATE: 2010
